FAERS Safety Report 4493123-2 (Version None)
Quarter: 2004Q4

REPORT INFORMATION
  Report Type: 
  Country: None (occurrence: None)
  Receive Date: 20041029
  Receipt Date: 20041020
  Transmission Date: 20050328
  Serious: Yes (Hospitalization)
  Sender: FDA-Public Use
  Company Number: HQWYE992022OCT04

PATIENT
  Age: 46 Year
  Sex: Male
  Weight: 88.53 kg

DRUGS (16)
  1. RAPAMUNE [Suspect]
     Indication: PROPHYLAXIS AGAINST TRANSPLANT REJECTION
     Dosage: 6 MG 1X PER 1 DAY, ORAL
     Route: 048
     Dates: start: 20020311, end: 20041015
  2. ERYTHROPOIETIN (ERYTHROPOIETIN) [Concomitant]
  3. ARANESP [Concomitant]
  4. GLYBURIDE [Concomitant]
  5. CORTISONE (CORTISONE) [Concomitant]
  6. RANITIDINE [Concomitant]
  7. CALCIUM CARBONATE (CALCIUM CARBONATE) [Concomitant]
  8. BENZOYL PEROXIDE (BENZOYL PEROXIDE) [Concomitant]
  9. VIAGRA [Concomitant]
  10. NPH INSULIN [Concomitant]
  11. MULTIVIT (VITAMINS NOS) [Concomitant]
  12. CALCITRIOL [Concomitant]
  13. CLONIDINE [Concomitant]
  14. ATENOLOL [Concomitant]
  15. DOXAZOSIN (DOXAZOSIN) [Concomitant]
  16. HYDROCHLOROTHIAZIDE [Concomitant]

REACTIONS (9)
  - ANAEMIA [None]
  - CARDIOMEGALY [None]
  - DIALYSIS [None]
  - DISEASE PROGRESSION [None]
  - GRAFT LOSS [None]
  - KIDNEY TRANSPLANT REJECTION [None]
  - NEUTROPHIL PERCENTAGE INCREASED [None]
  - PLEURAL EFFUSION [None]
  - STAPHYLOCOCCAL BACTERAEMIA [None]
